FAERS Safety Report 5128360-7 (Version None)
Quarter: 2006Q4

REPORT INFORMATION
  Report Type: 
  Country: None (occurrence: None)
  Receive Date: 20061017
  Receipt Date: 20061011
  Transmission Date: 20070319
  Serious: Yes (Other)
  Sender: FDA-Public Use
  Company Number: US-JNJFOC-20061002946

PATIENT
  Sex: Female
  Weight: 94.35 kg

DRUGS (19)
  1. TYLENOL (CAPLET) [Suspect]
  2. TYLENOL (CAPLET) [Suspect]
     Indication: ARTHRITIS
     Dosage: 1300-1950MG DAILY
  3. CELEBREX [Suspect]
     Indication: ARTHRITIS
  4. LAMICTAL [Concomitant]
     Indication: CONVULSION
  5. TOPAMAX [Concomitant]
     Indication: CONVULSION
  6. LISINOPRIL [Concomitant]
     Indication: DRUG USE FOR UNKNOWN INDICATION
  7. ZYRTEC [Concomitant]
     Indication: DRUG USE FOR UNKNOWN INDICATION
  8. CALCIUM GLUCONATE [Concomitant]
     Indication: DRUG USE FOR UNKNOWN INDICATION
  9. MULTI-VITAMIN [Concomitant]
     Indication: DRUG USE FOR UNKNOWN INDICATION
  10. ATIVAN [Concomitant]
     Indication: DRUG USE FOR UNKNOWN INDICATION
     Route: 048
  11. ASPIRIN [Concomitant]
     Indication: DRUG USE FOR UNKNOWN INDICATION
  12. FOSAMAX [Concomitant]
     Indication: DRUG USE FOR UNKNOWN INDICATION
  13. VITAMIN E [Concomitant]
     Indication: DRUG USE FOR UNKNOWN INDICATION
  14. TYLENOL PM [Concomitant]
     Indication: DRUG USE FOR UNKNOWN INDICATION
  15. CELEXA [Concomitant]
     Indication: DRUG USE FOR UNKNOWN INDICATION
  16. EVENING PRIMROSE [Concomitant]
     Indication: DRUG USE FOR UNKNOWN INDICATION
  17. MEVACOR [Concomitant]
     Indication: DRUG USE FOR UNKNOWN INDICATION
  18. FISH OIL [Concomitant]
     Indication: DRUG USE FOR UNKNOWN INDICATION
  19. COD LIVER [Concomitant]
     Indication: DRUG USE FOR UNKNOWN INDICATION

REACTIONS (1)
  - PETIT MAL EPILEPSY [None]
